FAERS Safety Report 21167826 (Version 1)
Quarter: 2022Q3

REPORT INFORMATION
  Report Type: Spontaneous
  Country: CZ (occurrence: CZ)
  Receive Date: 20220803
  Receipt Date: 20220803
  Transmission Date: 20221026
  Serious: Yes (Other)
  Sender: FDA-Public Use
  Company Number: CZ-MLMSERVICE-20220509-3548757-1

PATIENT
  Age: 69 Year
  Sex: Male

DRUGS (3)
  1. OLANZAPINE [Suspect]
     Active Substance: OLANZAPINE
     Indication: Manic symptom
     Dosage: 5?10 MG/D
     Route: 065
     Dates: start: 202008
  2. OLANZAPINE [Suspect]
     Active Substance: OLANZAPINE
     Dosage: 5?10 MG/D
     Route: 065
     Dates: start: 202008
  3. LITHIUM [Concomitant]
     Active Substance: LITHIUM
     Indication: Bipolar disorder
     Dosage: 1050-1200MG , DAILY
     Route: 065
     Dates: start: 202008

REACTIONS (1)
  - Sedation [Recovered/Resolved]
